FAERS Safety Report 5862872-3 (Version None)
Quarter: 2008Q3

REPORT INFORMATION
  Report Type: 
  Country: None (occurrence: None)
  Receive Date: 20080828
  Receipt Date: 20080822
  Transmission Date: 20090109
  Serious: Yes (Hospitalization)
  Sender: FDA-Public Use
  Company Number: A0731234A

PATIENT
  Age: 55 Year
  Sex: Female
  Weight: 95.5 kg

DRUGS (4)
  1. AVANDAMET [Suspect]
     Route: 048
     Dates: start: 20050101, end: 20060809
  2. AVANDARYL [Suspect]
     Route: 048
     Dates: start: 20060809, end: 20061223
  3. AMARYL [Concomitant]
  4. ATENOLOL [Concomitant]

REACTIONS (3)
  - ATRIAL FIBRILLATION [None]
  - BLOOD PRESSURE INCREASED [None]
  - CARDIAC FAILURE CONGESTIVE [None]
